FAERS Safety Report 8194466-1 (Version None)
Quarter: 2012Q1

REPORT INFORMATION
  Report Type: 
  Country: None (occurrence: None)
  Receive Date: 20120308
  Receipt Date: 20110223
  Transmission Date: 20120608
  Serious: No
  Sender: FDA-Public Use
  Company Number: US-GLAXOSMITHKLINE-A0915008A

PATIENT
  Age: 69 Year
  Sex: Female

DRUGS (4)
  1. THYROID MEDICATION [Concomitant]
  2. NICORETTE [Suspect]
     Indication: EX-TOBACCO USER
  3. NICORETTE (MINT) [Suspect]
     Indication: EX-TOBACCO USER
  4. NICOTINE POLACRILEX [Suspect]
     Indication: EX-TOBACCO USER

REACTIONS (3)
  - DRUG ADMINISTRATION ERROR [None]
  - NICOTINE DEPENDENCE [None]
  - NAUSEA [None]
